FAERS Safety Report 17460593 (Version 1)
Quarter: 2020Q1

REPORT INFORMATION
  Report Type: Spontaneous
  Country: FR (occurrence: FR)
  Receive Date: 20200226
  Receipt Date: 20200226
  Transmission Date: 20200409
  Serious: Yes (Other)
  Sender: FDA-Public Use
  Company Number: FR-AUROBINDO-AUR-APL-2020-009027

PATIENT
  Age: 59 Year
  Sex: Female
  Weight: 63 kg

DRUGS (20)
  1. DAPTOMYCINE ACCORD [Suspect]
     Active Substance: DAPTOMYCIN
     Indication: STREPTOCOCCAL BACTERAEMIA
     Dosage: 10 MILLIGRAM, ONCE A DAY
     Route: 024
     Dates: start: 20200110, end: 20200114
  2. LEVETIRACETAM MYLAN [Concomitant]
     Active Substance: LEVETIRACETAM
     Indication: PRODUCT USED FOR UNKNOWN INDICATION
     Dosage: UNK
     Route: 065
  3. LANSOPRAZOLE MYLAN [Concomitant]
     Active Substance: LANSOPRAZOLE
     Indication: PRODUCT USED FOR UNKNOWN INDICATION
     Dosage: UNK
     Route: 065
  4. BACLOFEN. [Concomitant]
     Active Substance: BACLOFEN
     Indication: PRODUCT USED FOR UNKNOWN INDICATION
     Dosage: UNK
     Route: 065
  5. RIFADINE [Suspect]
     Active Substance: RIFAMPIN
     Indication: STREPTOCOCCAL BACTERAEMIA
     Dosage: 1200 MILLIGRAM, ONCE A DAY
     Route: 041
     Dates: start: 20200121
  6. BACTRIM [Concomitant]
     Active Substance: SULFAMETHOXAZOLE\TRIMETHOPRIM
     Indication: PRODUCT USED FOR UNKNOWN INDICATION
     Dosage: UNK
     Route: 065
  7. LINEZOLIDE ARROW 600 MG FILM COATED TABLET [Suspect]
     Active Substance: LINEZOLID
     Indication: STREPTOCOCCAL BACTERAEMIA
     Dosage: 1200 MILLIGRAM, ONCE A DAY
     Route: 048
     Dates: start: 20191226, end: 20191230
  8. DAPTOMYCINE ACCORD [Suspect]
     Active Substance: DAPTOMYCIN
     Indication: STREPTOCOCCAL BACTERAEMIA
     Dosage: 700 MILLIGRAM, ONCE A DAY
     Route: 042
     Dates: start: 20200114, end: 20200120
  9. DOLIPRANE [Concomitant]
     Active Substance: ACETAMINOPHEN
     Indication: PRODUCT USED FOR UNKNOWN INDICATION
     Dosage: UNK
     Route: 065
  10. LOVENOX [Concomitant]
     Active Substance: ENOXAPARIN SODIUM
     Indication: PRODUCT USED FOR UNKNOWN INDICATION
     Dosage: UNK
     Route: 065
  11. XYDALBA [Suspect]
     Active Substance: DALBAVANCIN HYDROCHLORIDE
     Indication: STREPTOCOCCAL BACTERAEMIA
     Dosage: 1500 MILLIGRAM, ONCE A DAY
     Route: 042
     Dates: start: 20200110, end: 20200120
  12. ZINFORO [Suspect]
     Active Substance: CEFTAROLINE FOSAMIL
     Indication: STREPTOCOCCAL BACTERAEMIA
     Dosage: 1800 MILLIGRAM, ONCE A DAY
     Route: 048
     Dates: start: 20191230, end: 20200114
  13. DOXYCYCLINE SANDOZ [Suspect]
     Active Substance: DOXYCYCLINE
     Indication: STREPTOCOCCAL BACTERAEMIA
     Dosage: 200 MILLIGRAM, ONCE A DAY
     Route: 048
     Dates: start: 20200124
  14. MOVICOL [Concomitant]
     Active Substance: POLYETHYLENE GLYCOL 3350\POTASSIUM CHLORIDE\SODIUM BICARBONATE\SODIUM CHLORIDE
     Indication: PRODUCT USED FOR UNKNOWN INDICATION
     Dosage: UNK
     Route: 065
  15. NEFOPAM MEDISOL [Concomitant]
     Active Substance: NEFOPAM HYDROCHLORIDE
     Indication: PRODUCT USED FOR UNKNOWN INDICATION
     Dosage: UNK
     Route: 065
  16. VANCOMYCINE MYLAN [Suspect]
     Active Substance: VANCOMYCIN
     Indication: STREPTOCOCCAL BACTERAEMIA
     Dosage: 2.5 GRAM, ONCE A DAY
     Route: 041
     Dates: start: 20200121, end: 20200130
  17. CEFOTAXIME [Suspect]
     Active Substance: CEFOTAXIME SODIUM
     Indication: STREPTOCOCCAL BACTERAEMIA
     Dosage: 3000 MILLIGRAM, ONCE A DAY
     Route: 042
     Dates: start: 20191226, end: 20191230
  18. XYDALBA [Suspect]
     Active Substance: DALBAVANCIN HYDROCHLORIDE
     Indication: PRODUCT USED FOR UNKNOWN INDICATION
     Dosage: 1800 MILLIGRAM, ONCE A DAY
     Route: 048
     Dates: start: 20191230, end: 20200114
  19. ZINFORO [Suspect]
     Active Substance: CEFTAROLINE FOSAMIL
     Dosage: 1800 MILLIGRAM, ONCE A DAY
     Route: 048
     Dates: start: 20191230, end: 20200114
  20. DIFFU K [Concomitant]
     Active Substance: POTASSIUM CHLORIDE
     Indication: PRODUCT USED FOR UNKNOWN INDICATION
     Dosage: UNK
     Route: 065

REACTIONS (3)
  - Metabolic encephalopathy [Not Recovered/Not Resolved]
  - Myoclonus [Not Recovered/Not Resolved]
  - Confusional state [Not Recovered/Not Resolved]

NARRATIVE: CASE EVENT DATE: 20200126
